FAERS Safety Report 8340681 (Version 2)
Quarter: 2012Q4

REPORT INFORMATION
  Report Type: 
  Country: BR (occurrence: BR)
  Receive Date: 20120118
  Receipt Date: 20121107
  Transmission Date: 20130627
  Serious: Yes (Other)
  Sender: FDA-Public Use
  Company Number: BR-AMGEN-BRASP2012001843

PATIENT
  Age: 54 Year
  Sex: Female
  Weight: 52 kg

DRUGS (12)
  1. ENBREL [Suspect]
     Indication: RHEUMATOID ARTHRITIS
     Dosage: 50 mg, once weekly
     Route: 058
     Dates: start: 201101
  2. ENBREL [Suspect]
     Dosage: 50 mg, weekly
     Route: 058
     Dates: start: 201105
  3. ENBREL [Suspect]
     Dosage: 50 mg, qwk
     Route: 058
     Dates: start: 201210
  4. METHOTREXATE [Concomitant]
     Dosage: 6 tablets (2.5mg each) once a week
     Route: 048
  5. PREDNISONE [Concomitant]
     Dosage: 1 tablet (3mg),  3x/day
     Route: 048
  6. AAS [Concomitant]
     Dosage: UNK
  7. CAPTOPRIL [Concomitant]
     Dosage: 1 tablet (25 mg), 1x/day
     Route: 048
  8. ATENOLOL [Concomitant]
     Dosage: UNK
  9. FLUOXETINE [Concomitant]
     Dosage: UNK
  10. SIMVASTATIN [Concomitant]
     Dosage: UNK
  11. FLUIR [Concomitant]
     Dosage: UNK
  12. PARACETAMOL [Concomitant]
     Dosage: 2 tablets (750 mg each) , 2x/day when needed
     Route: 048

REACTIONS (6)
  - Venous occlusion [Unknown]
  - Pain [Unknown]
  - Oedema peripheral [Unknown]
  - Drug ineffective [Unknown]
  - Injection site pain [Unknown]
  - Injection site discolouration [Unknown]
